FAERS Safety Report 7991673-5 (Version None)
Quarter: 2011Q4

REPORT INFORMATION
  Report Type: 
  Country: None (occurrence: None)
  Receive Date: 20111219
  Receipt Date: 20111209
  Transmission Date: 20120403
  Serious: Yes (Other)
  Sender: FDA-Public Use
  Company Number: PHEH2011US011414

PATIENT
  Sex: Female

DRUGS (10)
  1. ACETYLSALICYLIC ACID SRT [Concomitant]
  2. RECLAST [Suspect]
     Indication: OSTEOPOROSIS
     Dosage: UNK
     Route: 042
     Dates: start: 20111118
  3. CLONAZEPAM [Concomitant]
  4. ZETIA [Concomitant]
  5. PAXIL [Suspect]
     Indication: DEPRESSION
     Dosage: 20 MG, UNK
  6. LIPITOR [Concomitant]
     Indication: BLOOD CHOLESTEROL INCREASED
  7. LISINOPRIL [Concomitant]
  8. TUMS E-X [Suspect]
  9. VITAMIN D [Concomitant]
  10. OSCAL [Suspect]
     Route: 048

REACTIONS (13)
  - DYSPNOEA [None]
  - ABDOMINAL DISCOMFORT [None]
  - PAIN [None]
  - MONOPLEGIA [None]
  - DEPRESSION [None]
  - HEADACHE [None]
  - CRYING [None]
  - ABDOMINAL PAIN UPPER [None]
  - ARTHRALGIA [None]
  - INSOMNIA [None]
  - CHILLS [None]
  - PAIN IN EXTREMITY [None]
  - NAUSEA [None]
